FAERS Safety Report 6579200-0 (Version None)
Quarter: 2010Q1

REPORT INFORMATION
  Report Type: 
  Country: None (occurrence: None)
  Receive Date: 20100212
  Receipt Date: 20100205
  Transmission Date: 20100710
  Serious: Yes (Hospitalization)
  Sender: FDA-Public Use
  Company Number: TR-MEDIMMUNE-MEDI-0010435

PATIENT
  Sex: Female
  Weight: 9.6 kg

DRUGS (3)
  1. SYNAGIS [Suspect]
     Route: 030
     Dates: start: 20091225, end: 20091225
  2. SYNAGIS [Suspect]
     Route: 030
     Dates: start: 20100125
  3. DIGOXIN [Concomitant]
     Route: 048
     Dates: start: 20080516

REACTIONS (2)
  - INFECTION [None]
  - PYREXIA [None]
